FAERS Safety Report 25222533 (Version 2)
Quarter: 2025Q2

REPORT INFORMATION
  Report Type: Report from Study
  Country: US (occurrence: US)
  Receive Date: 20250421
  Receipt Date: 20250623
  Transmission Date: 20250716
  Serious: Yes (Other)
  Sender: ABBVIE
  Company Number: US-ABBVIE-6140788

PATIENT
  Age: 66 Year
  Sex: Female

DRUGS (1)
  1. RINVOQ [Suspect]
     Active Substance: UPADACITINIB
     Indication: Rheumatoid arthritis
     Route: 048
     Dates: start: 20220706

REACTIONS (4)
  - Arthritis [Recovering/Resolving]
  - Hyperhidrosis [Recovering/Resolving]
  - Illness [Unknown]
  - Procedural pain [Unknown]

NARRATIVE: CASE EVENT DATE: 20250401
